FAERS Safety Report 8196939-4 (Version None)
Quarter: 2012Q1

REPORT INFORMATION
  Report Type: 
  Country: None (occurrence: None)
  Receive Date: 20120309
  Receipt Date: 20120302
  Transmission Date: 20120608
  Serious: Yes (Other)
  Sender: FDA-Public Use
  Company Number: ES-JNJFOC-20120301663

PATIENT
  Age: 83 Year
  Sex: Male

DRUGS (2)
  1. PREDNISONE [Concomitant]
     Indication: PROSTATE CANCER
     Route: 065
     Dates: start: 20120101
  2. ZYTIGA [Suspect]
     Indication: PROSTATE CANCER
     Route: 048
     Dates: start: 20120101

REACTIONS (1)
  - THROMBOCYTOPENIA [None]
